FAERS Safety Report 16776551 (Version 1)
Quarter: 2019Q3

REPORT INFORMATION
  Report Type: Spontaneous
  Country: US (occurrence: US)
  Receive Date: 20190905
  Receipt Date: 20190905
  Transmission Date: 20191005
  Serious: Yes (Death, Life-Threatening)
  Sender: FDA-Public Use
  Company Number: US-AGG-05-2019-1947

PATIENT
  Age: 67 Year
  Sex: Male

DRUGS (4)
  1. AGGRASTAT [Suspect]
     Active Substance: TIROFIBAN HYDROCHLORIDE
     Indication: ANTIPLATELET THERAPY
     Route: 041
     Dates: start: 20190505, end: 20190508
  2. AGGRASTAT [Suspect]
     Active Substance: TIROFIBAN HYDROCHLORIDE
     Indication: ANTIPLATELET THERAPY
     Dosage: PATIENT RECEIVED AGGRASTAT 1000 MCG IV PUSH X 1 DURING PROCEDURE
     Route: 042
     Dates: start: 20190423, end: 20190423
  3. ASPIRIN. [Concomitant]
     Active Substance: ASPIRIN
     Indication: ANTIPLATELET THERAPY
  4. TICAGRELOR. [Concomitant]
     Active Substance: TICAGRELOR
     Indication: ANTIPLATELET THERAPY
     Dates: end: 20190505

REACTIONS (4)
  - Oxygen saturation decreased [Recovered/Resolved]
  - Pulseless electrical activity [Recovered/Resolved]
  - Bradycardia [Recovered/Resolved]
  - Post procedural pulmonary embolism [Recovered/Resolved]

NARRATIVE: CASE EVENT DATE: 20190508
